FAERS Safety Report 16750746 (Version 2)
Quarter: 2019Q3

REPORT INFORMATION
  Report Type: Spontaneous
  Country: JP (occurrence: JP)
  Receive Date: 20190828
  Receipt Date: 20190906
  Transmission Date: 20191005
  Serious: Yes (Death)
  Sender: FDA-Public Use
  Company Number: JP-ROCHE-2385224

PATIENT
  Age: 83 Year
  Sex: Female

DRUGS (2)
  1. LIMETHASON [Suspect]
     Active Substance: DEXAMETHASONE PALMITATE
     Indication: STILL^S DISEASE
     Dosage: DOSAGE IS UNCERTAIN.
     Route: 065
  2. ACTEMRA [Suspect]
     Active Substance: TOCILIZUMAB
     Indication: STILL^S DISEASE
     Route: 041
     Dates: start: 20190730, end: 20190730

REACTIONS (3)
  - Cytomegalovirus infection [Fatal]
  - Staphylococcal sepsis [Fatal]
  - Multi-organ disorder [Fatal]

NARRATIVE: CASE EVENT DATE: 20190813
